FAERS Safety Report 9844857 (Version 1)
Quarter: 2014Q1

REPORT INFORMATION
  Report Type: Spontaneous
  Country: FR (occurrence: None)
  Receive Date: 20140122
  Receipt Date: 20140122
  Transmission Date: 20141002
  Serious: Yes (Hospitalization)
  Sender: FDA-Public Use
  Company Number: 2118537

PATIENT
  Age: 78 Year
  Sex: Female

DRUGS (12)
  1. PAMIDRONIC ACID [Suspect]
     Indication: PRODUCT USED FOR UNKNOWN INDICATION
     Dosage: 1 D,  (NOT OTHERWISE SPECIFIED)
     Route: 042
     Dates: start: 20131121, end: 20131124
  2. CLOPIDOGREL [Concomitant]
  3. HYDROCHLOROTHIAZIDE W/IRBESARTAN [Concomitant]
  4. SOTALOL [Concomitant]
  5. ATORVASTATIN [Concomitant]
  6. LORAZEPAM [Concomitant]
  7. MORPHINE [Concomitant]
  8. PARACETAMOL [Concomitant]
  9. KETOPROFENE /00321701/) [Concomitant]
  10. DALTEPARIN [Concomitant]
  11. POTASSIUM CHLORIDE [Concomitant]
  12. TRAMADOL [Concomitant]

REACTIONS (3)
  - Arrhythmia [None]
  - Atrial fibrillation [None]
  - Heart rate increased [None]
